FAERS Safety Report 8485717-4 (Version None)
Quarter: 2012Q3

REPORT INFORMATION
  Report Type: 
  Country: None (occurrence: None)
  Receive Date: 20120703
  Receipt Date: 20120625
  Transmission Date: 20120928
  Serious: Yes (Other)
  Sender: FDA-Public Use
  Company Number: US-ALLERGAN-1208794US

PATIENT
  Sex: Male

DRUGS (2)
  1. BOTULINUM TOXIN TYPE A [Suspect]
     Dosage: 14 UNITS, SINGLE
     Route: 030
  2. BOTULINUM TOXIN TYPE A [Suspect]
     Indication: TENSION HEADACHE
     Dosage: 46 UNITS, SINGLE
     Route: 030

REACTIONS (4)
  - TINNITUS [None]
  - DIZZINESS [None]
  - HEADACHE [None]
  - DEAFNESS [None]
